FAERS Safety Report 25076561 (Version 1)
Quarter: 2025Q1

REPORT INFORMATION
  Report Type: Spontaneous
  Country: CZ (occurrence: CZ)
  Receive Date: 20250313
  Receipt Date: 20250313
  Transmission Date: 20250408
  Serious: Yes (Other)
  Sender: MERCK SHARP & DOHME LLC
  Company Number: None

PATIENT
  Sex: Female

DRUGS (4)
  1. KEYTRUDA [Suspect]
     Active Substance: PEMBROLIZUMAB
     Dosage: DOSE DESCRIPTION : 200 MILLIGRAM, 1X 3 WEEKS?DAILY DOSE : 9.4 MILLIGRAM?CONCENTRATION: 200 MILLIG...
     Route: 042
     Dates: start: 20240905
  2. PACLITAXEL [Suspect]
     Active Substance: PACLITAXEL
     Dosage: DOSE DESCRIPTION : 80 MICROGRAM PER SQ METER, 1X WEEK (QW); 12 CYCLES?DAILY DOSE : 11.44 MICROGRA...
     Route: 042
     Dates: start: 20240905, end: 20241122
  3. CARBOPLATIN [Suspect]
     Active Substance: CARBOPLATIN
     Dosage: DOSE DESCRIPTION : UNK, 1X WEEK (QW); 12 CYCLES
     Route: 042
     Dates: start: 20240905, end: 20241122
  4. GOSERELIN [Concomitant]
     Active Substance: GOSERELIN
     Route: 058

REACTIONS (18)
  - Rectal haemorrhage [Not Recovered/Not Resolved]
  - Migraine [Not Recovered/Not Resolved]
  - Hot flush [Not Recovered/Not Resolved]
  - Epistaxis [Not Recovered/Not Resolved]
  - Hair disorder [Not Recovered/Not Resolved]
  - Full blood count abnormal [Not Recovered/Not Resolved]
  - Anxiety [Not Recovered/Not Resolved]
  - Palpitations [Not Recovered/Not Resolved]
  - Visual impairment [Not Recovered/Not Resolved]
  - Hyperhidrosis [Not Recovered/Not Resolved]
  - Abdominal pain lower [Not Recovered/Not Resolved]
  - Dry eye [Not Recovered/Not Resolved]
  - Urticaria [Recovered/Resolved]
  - Alopecia [Not Recovered/Not Resolved]
  - Dysgeusia [Not Recovered/Not Resolved]
  - Insomnia [Not Recovered/Not Resolved]
  - Decreased appetite [Not Recovered/Not Resolved]
  - Fatigue [Not Recovered/Not Resolved]

NARRATIVE: CASE EVENT DATE: 20240901
